FAERS Safety Report 7587606-6 (Version None)
Quarter: 2011Q3

REPORT INFORMATION
  Report Type: 
  Country: None (occurrence: None)
  Receive Date: 20110704
  Receipt Date: 20110622
  Transmission Date: 20111222
  Serious: Yes (Other)
  Sender: FDA-Public Use
  Company Number: PHHY2011NL55646

PATIENT
  Sex: Male

DRUGS (2)
  1. ZOMETA [Suspect]
     Dosage: 04 MG/5 ML; EVERY 12 WEEKS, CONCENTRATE FOR SOLUTION FOR IV INFUSION
     Dates: start: 20110407
  2. ZOMETA [Suspect]
     Indication: PROSTATE CANCER METASTATIC
     Dosage: 04 MG/5 ML; EVERY 12 WEEKS, CONCENTRATE FOR SOLUTION FOR IV INFUSION
     Dates: start: 20110107

REACTIONS (2)
  - RENAL IMPAIRMENT [None]
  - GENERAL PHYSICAL HEALTH DETERIORATION [None]
